FAERS Safety Report 7122593-6 (Version None)
Quarter: 2010Q4

REPORT INFORMATION
  Report Type: 
  Country: None (occurrence: None)
  Receive Date: 20101124
  Receipt Date: 20101115
  Transmission Date: 20110411
  Serious: Yes (Hospitalization)
  Sender: FDA-Public Use
  Company Number: TR-WATSON-2010-15095

PATIENT
  Age: 33 Year
  Sex: Female

DRUGS (2)
  1. MONODOX [Suspect]
     Indication: VAGINAL INFECTION
     Dosage: 500 MG, BID X 3 DAYS
  2. ORNIDAZOLE [Suspect]
     Indication: VAGINAL INFECTION
     Dosage: 500 MG, BID X 3 DAYS

REACTIONS (1)
  - PANCREATITIS [None]
